FAERS Safety Report 5276945-X (Version None)
Quarter: 2007Q1

REPORT INFORMATION
  Report Type: 
  Country: None (occurrence: None)
  Receive Date: 20070327
  Receipt Date: 20070319
  Transmission Date: 20070707
  Serious: Yes (Hospitalization)
  Sender: FDA-Public Use
  Company Number: PHRM2007FR00739

PATIENT
  Age: 81 Year
  Sex: Female

DRUGS (6)
  1. VOLTAREN [Suspect]
     Dosage: 75 MG, BID
     Route: 048
     Dates: start: 20061217, end: 20061227
  2. LIPANTHYL [Concomitant]
     Route: 048
  3. OROCAL [Concomitant]
     Route: 048
  4. ACETAMINOPHEN [Concomitant]
     Dosage: 500 MG, UNK
     Route: 048
  5. BECOTIDE [Concomitant]
     Dosage: 250 UG, UNK
  6. ERCEFURYL [Concomitant]
     Dosage: 200 MG, UNK
     Route: 048

REACTIONS (7)
  - ANAEMIA [None]
  - COLONIC POLYP [None]
  - DIVERTICULUM INTESTINAL [None]
  - HAEMOGLOBIN DECREASED [None]
  - LARGE INTESTINAL ULCER [None]
  - OESOPHAGEAL ULCER [None]
  - RECTAL HAEMORRHAGE [None]
